FAERS Safety Report 21992466 (Version 2)
Quarter: 2023Q2

REPORT INFORMATION
  Report Type: Report from Study
  Country: US (occurrence: US)
  Receive Date: 20230215
  Receipt Date: 20230525
  Transmission Date: 20230722
  Serious: Yes (Death, Other)
  Sender: FDA-Public Use
  Company Number: US-SUN PHARMACEUTICAL INDUSTRIES LTD-2023R1-378293

PATIENT
  Age: 50 Year
  Sex: Male

DRUGS (1)
  1. AMPHETAMINE [Suspect]
     Active Substance: AMPHETAMINE
     Indication: Product used for unknown indication
     Dosage: UNK
     Route: 065

REACTIONS (14)
  - Toxicity to various agents [Fatal]
  - Respiratory depression [Fatal]
  - Metabolic acidosis [Fatal]
  - Anion gap [Fatal]
  - Acute kidney injury [Fatal]
  - Sympathomimetic effect [Fatal]
  - Tachycardia [Fatal]
  - Hyperthermia [Fatal]
  - Pneumonitis aspiration [Fatal]
  - Hyperreflexia [Fatal]
  - Coagulopathy [Fatal]
  - Thrombocytopenia [Fatal]
  - Rhabdomyolysis [Fatal]
  - Intestinal ischaemia [Fatal]
